FAERS Safety Report 5188061-6 (Version None)
Quarter: 2006Q4

REPORT INFORMATION
  Report Type: 
  Country: None (occurrence: None)
  Receive Date: 20061214
  Receipt Date: 20061214
  Transmission Date: 20070319
  Serious: No
  Sender: FDA-Public Use
  Company Number: None

PATIENT
  Age: 23 Year
  Sex: Female

DRUGS (1)
  1. DIPIVEFRIN HCL [Suspect]
     Indication: GLAUCOMA
     Dates: start: 20061001

REACTIONS (3)
  - INTRACRANIAL PRESSURE INCREASED [None]
  - OEDEMA [None]
  - OPTIC DISC DISORDER [None]
